FAERS Safety Report 7523186-9 (Version None)
Quarter: 2011Q2

REPORT INFORMATION
  Report Type: 
  Country: None (occurrence: None)
  Receive Date: 20110603
  Receipt Date: 20110523
  Transmission Date: 20111010
  Serious: Yes (Other)
  Sender: FDA-Public Use
  Company Number: US-ELI_LILLY_AND_COMPANY-US201104001434

PATIENT
  Sex: Male

DRUGS (1)
  1. HUMATROPE [Suspect]
     Indication: BODY HEIGHT BELOW NORMAL
     Dosage: 4 CLICKS OF 1.6 MG, QD
     Dates: start: 20071128

REACTIONS (2)
  - DRUG DOSE OMISSION [None]
  - HYPERTROPHIC CARDIOMYOPATHY [None]
